FAERS Safety Report 23055684 (Version 1)
Quarter: 2023Q4

REPORT INFORMATION
  Report Type: Spontaneous
  Country: CZ (occurrence: CZ)
  Receive Date: 20231011
  Receipt Date: 20231011
  Transmission Date: 20240110
  Serious: Yes (Other)
  Sender: FDA-Public Use
  Company Number: CZ-009507513-2310CZE000529

PATIENT
  Sex: Female

DRUGS (3)
  1. CARBOPLATIN [Suspect]
     Active Substance: CARBOPLATIN
     Indication: Lung adenocarcinoma
     Route: 065
     Dates: start: 20221229, end: 202303
  2. PEMETREXED [Suspect]
     Active Substance: PEMETREXED
     Indication: Lung adenocarcinoma
     Dosage: 9 CYCLES IN TOTAL ADMINISTERED
     Route: 065
     Dates: start: 20221229
  3. KEYTRUDA [Suspect]
     Active Substance: PEMBROLIZUMAB
     Indication: Lung adenocarcinoma
     Dosage: 12 CYCLES IN TOTAL ADMINISTERED?FORM OF ADMIN. - SOLUTION FOR INJECTION
     Route: 065
     Dates: start: 20221229

REACTIONS (4)
  - Thrombocytopenia [None]
  - Leukopenia [None]
  - Renal failure [None]
  - Anaemia [None]
